FAERS Safety Report 24991845 (Version 3)
Quarter: 2025Q1

REPORT INFORMATION
  Report Type: Spontaneous
  Country: JP (occurrence: JP)
  Receive Date: 20250220
  Receipt Date: 20250313
  Transmission Date: 20250409
  Serious: Yes (Hospitalization)
  Sender: UCB
  Company Number: JP-UCBJ-CD202501999UCBPHAPROD

PATIENT
  Age: 72 Year
  Sex: Male

DRUGS (1)
  1. VIMPAT [Suspect]
     Active Substance: LACOSAMIDE
     Indication: Epilepsy
     Dosage: 75 MILLIGRAM, 2X/DAY (BID)
     Route: 048

REACTIONS (1)
  - Abdominal discomfort [Unknown]
